FAERS Safety Report 11375975 (Version 1)
Quarter: 2015Q3

REPORT INFORMATION
  Report Type: Other
  Country: DE (occurrence: DE)
  Receive Date: 20150813
  Receipt Date: 20150813
  Transmission Date: 20151125
  Serious: Yes (Hospitalization)
  Sender: FDA-Public Use
  Company Number: DE-MYLANLABS-2015M1026342

PATIENT

DRUGS (9)
  1. LACTULOSE. [Concomitant]
     Active Substance: LACTULOSE
     Dosage: 30 ML, QD
     Dates: start: 20130713
  2. CETIRIZIN [Concomitant]
     Active Substance: CETIRIZINE HYDROCHLORIDE
     Dosage: TAGESDOSIS 10
     Dates: start: 20130719
  3. SERDOLECT [Interacting]
     Active Substance: SERTINDOLE
     Dosage: TAGESDOSIS 8
     Dates: start: 20121219, end: 20130804
  4. ABILIFY [Concomitant]
     Active Substance: ARIPIPRAZOLE
     Dosage: 30 MG, QD (TAGESDOSIS 30)
     Dates: start: 20100421
  5. AMISULPRID [Interacting]
     Active Substance: AMISULPRIDE
     Dosage: 800 MG, QD (TAGESDOSIS 800)
     Dates: start: 20130716, end: 20130823
  6. DICLOFENAC [Concomitant]
     Active Substance: DICLOFENAC
     Dosage: TAGESDOSIS 75 - SEIT JAHREN
  7. BECLOMETASON-CT [Concomitant]
  8. CITALOPRAM [Suspect]
     Active Substance: CITALOPRAM HYDROBROMIDE
     Dosage: 20 MG, QD (TAGESDOSIS 20)
     Dates: start: 20120726, end: 20130804
  9. PANTOZOL [Concomitant]
     Active Substance: PANTOPRAZOLE SODIUM
     Dosage: 40 MG, QD (TAGESDOSIS 40)
     Dates: start: 2010

REACTIONS (2)
  - Drug interaction [Unknown]
  - Galactorrhoea [Recovered/Resolved]

NARRATIVE: CASE EVENT DATE: 20130804
